FAERS Safety Report 19859539 (Version 1)
Quarter: 2021Q3

REPORT INFORMATION
  Report Type: Spontaneous
  Country: IM (occurrence: IM)
  Receive Date: 20210920
  Receipt Date: 20210920
  Transmission Date: 20211014
  Serious: Yes (Hospitalization)
  Sender: FDA-Public Use
  Company Number: None

PATIENT
  Age: 12 Year
  Sex: Female
  Weight: 52 kg

DRUGS (7)
  1. ELIDEL [Concomitant]
     Active Substance: PIMECROLIMUS
  2. DERMOVATE [Concomitant]
     Active Substance: CLOBETASOL
  3. HYDROCORTISONE. [Suspect]
     Active Substance: HYDROCORTISONE
     Indication: ECZEMA
     Dates: start: 20110320, end: 20201031
  4. EUMOVATE [Concomitant]
     Active Substance: CLOBETASONE BUTYRATE
  5. EUMOVATE [Suspect]
     Active Substance: CLOBETASONE BUTYRATE
     Indication: ECZEMA
     Dates: start: 20160330, end: 20201031
  6. BETNOVATE [Concomitant]
     Active Substance: BETAMETHASONE
  7. ELOCON [Concomitant]
     Active Substance: MOMETASONE FUROATE

REACTIONS (11)
  - Neuralgia [None]
  - Skin exfoliation [None]
  - Skin discolouration [None]
  - Insomnia [None]
  - Skin hypertrophy [None]
  - Depression [None]
  - Eczema [None]
  - Skin weeping [None]
  - Oedema peripheral [None]
  - Skin disorder [None]
  - Eyelid oedema [None]

NARRATIVE: CASE EVENT DATE: 20210528
